FAERS Safety Report 8252365-0 (Version None)
Quarter: 2012Q2

REPORT INFORMATION
  Report Type: 
  Country: None (occurrence: None)
  Receive Date: 20120402
  Receipt Date: 20110527
  Transmission Date: 20120825
  Serious: No
  Sender: FDA-Public Use
  Company Number: US-ABBOTT-11P-163-0804619-00

PATIENT
  Age: 58 Year
  Sex: Male
  Weight: 145.45 kg

DRUGS (1)
  1. TESTOSTERONE [Suspect]
     Indication: BLOOD TESTOSTERONE DECREASED
     Dosage: DAILY DOSE:  UNKNOWN, FREQUENCY: ONCE A DAY
     Route: 062
     Dates: start: 20100501

REACTIONS (3)
  - ERECTILE DYSFUNCTION [None]
  - SENSORY LOSS [None]
  - DRUG ADMINISTERED AT INAPPROPRIATE SITE [None]
